FAERS Safety Report 22131693 (Version 2)
Quarter: 2023Q2

REPORT INFORMATION
  Report Type: Spontaneous
  Country: US (occurrence: US)
  Receive Date: 20230323
  Receipt Date: 20230403
  Transmission Date: 20230722
  Serious: Yes (Hospitalization, Other)
  Sender: FDA-Public Use
  Company Number: US-SANOFI-01540201

PATIENT
  Age: 72 Year
  Sex: Male
  Weight: 83 kg

DRUGS (2)
  1. JEVTANA [Suspect]
     Active Substance: CABAZITAXEL
     Indication: Hormone-refractory prostate cancer
     Dosage: 20 MG/M2
     Route: 042
     Dates: start: 20230227
  2. JEVTANA [Suspect]
     Active Substance: CABAZITAXEL
     Indication: Hormone-refractory prostate cancer

REACTIONS (2)
  - Dyspnoea [Not Recovered/Not Resolved]
  - Pneumonitis [Unknown]

NARRATIVE: CASE EVENT DATE: 20230227
